FAERS Safety Report 9579020 (Version 1)
Quarter: 2013Q4

REPORT INFORMATION
  Report Type: Spontaneous
  Country: US (occurrence: US)
  Receive Date: 20131001
  Receipt Date: 20131001
  Transmission Date: 20140711
  Serious: No
  Sender: FDA-Public Use
  Company Number: US-AMGEN-USASP2013016216

PATIENT
  Age: 56 Year
  Sex: Female
  Weight: 74.83 kg

DRUGS (6)
  1. ENBREL [Suspect]
     Indication: RHEUMATOID ARTHRITIS
     Dosage: UNK
     Dates: start: 200410, end: 200411
  2. TYLENOL                            /00020001/ [Concomitant]
     Dosage: UNK
  3. SIMVASTATIN [Concomitant]
     Dosage: UNK
  4. PAXIL                              /00500401/ [Concomitant]
     Dosage: UNK
  5. FOLIC ACID [Concomitant]
     Dosage: UNK
  6. CALCIUM [Concomitant]
     Dosage: UNK

REACTIONS (2)
  - Fungal infection [Unknown]
  - Oral herpes [Unknown]
